FAERS Safety Report 6413556-4 (Version None)
Quarter: 2009Q4

REPORT INFORMATION
  Report Type: 
  Country: None (occurrence: None)
  Receive Date: 20091026
  Receipt Date: 20091013
  Transmission Date: 20100525
  Serious: Yes (Hospitalization)
  Sender: FDA-Public Use
  Company Number: PHHY2009MX41362

PATIENT
  Sex: Female

DRUGS (1)
  1. DIOVAN [Suspect]
     Indication: HYPERTENSION
     Dosage: 1 TABLET (80 MG) PER DAY
     Dates: start: 20000101

REACTIONS (5)
  - FALL [None]
  - HYPERTENSION [None]
  - JOINT DISLOCATION [None]
  - KNEE OPERATION [None]
  - LIGAMENT RUPTURE [None]
